FAERS Safety Report 6305158-5 (Version None)
Quarter: 2009Q3

REPORT INFORMATION
  Report Type: 
  Country: None (occurrence: None)
  Receive Date: 20090805
  Receipt Date: 20080609
  Transmission Date: 20100115
  Serious: Yes (Other)
  Sender: FDA-Public Use
  Company Number: DSU-2008-00835

PATIENT
  Age: 61 Year
  Sex: Female
  Weight: 63.5036 kg

DRUGS (1)
  1. BENICAR HCT [Suspect]
     Indication: HYPERTENSION
     Dosage: 20/12.5 MG (QD), PER ORAL
     Route: 048
     Dates: start: 20061201

REACTIONS (3)
  - FATIGUE [None]
  - FEELING ABNORMAL [None]
  - HYPOTENSION [None]
